FAERS Safety Report 5353626-5 (Version None)
Quarter: 2007Q2

REPORT INFORMATION
  Report Type: 
  Country: None (occurrence: None)
  Receive Date: 20070608
  Receipt Date: 20070608
  Transmission Date: 20071010
  Serious: Yes (Other)
  Sender: FDA-Public Use
  Company Number: None

PATIENT
  Age: 65 Year
  Sex: Male
  Weight: 90.7194 kg

DRUGS (3)
  1. SIMVASTATIN [Suspect]
     Dosage: 10MG ORAL
     Route: 048
     Dates: start: 20060923, end: 20070523
  2. CARDURA [Concomitant]
  3. AVODART [Concomitant]

REACTIONS (2)
  - PAIN IN EXTREMITY [None]
  - PHARMACEUTICAL PRODUCT COMPLAINT [None]
